FAERS Safety Report 23645342 (Version 1)
Quarter: 2024Q1

REPORT INFORMATION
  Report Type: Spontaneous
  Country: US (occurrence: US)
  Receive Date: 20240318
  Receipt Date: 20240318
  Transmission Date: 20240410
  Serious: Yes (Other)
  Sender: FDA-Public Use
  Company Number: US-AMGEN-USASP2024045919

PATIENT
  Age: 65 Year
  Sex: Male

DRUGS (1)
  1. RITUXIMAB [Suspect]
     Active Substance: RITUXIMAB
     Indication: Glomerulonephritis membranoproliferative
     Dosage: UNK
     Route: 065

REACTIONS (3)
  - Quadrantanopia [Recovered/Resolved]
  - Tandem gait test abnormal [Recovered/Resolved]
  - Off label use [Unknown]
